FAERS Safety Report 8041998 (Version 24)
Quarter: 2017Q1

REPORT INFORMATION
  Report Type: Report from Study
  Country: CA (occurrence: CA)
  Receive Date: 20110718
  Receipt Date: 20170210
  Transmission Date: 20170429
  Serious: Yes (Hospitalization, Other)
  Sender: FDA-Public Use
  Company Number: PHHY2011CA62209

PATIENT
  Age: 77 Year
  Sex: Female

DRUGS (6)
  1. ESTROGENS [Concomitant]
     Active Substance: ESTROGENS
     Indication: PRODUCT USED FOR UNKNOWN INDICATION
     Route: 065
  2. ASA [Concomitant]
     Active Substance: ASPIRIN
     Indication: PRODUCT USED FOR UNKNOWN INDICATION
     Route: 065
  3. SANDOSTATIN [Suspect]
     Active Substance: OCTREOTIDE ACETATE
     Indication: CARCINOID TUMOUR
     Dosage: ONCE/SINGLE TEST DOSE
     Route: 058
     Dates: start: 20110630, end: 20110630
  4. SANDOSTATIN LAR DEPOT [Suspect]
     Active Substance: OCTREOTIDE ACETATE
     Indication: CARCINOID TUMOUR
     Dosage: 20 MG, QMO (EVERY 4 WEEKS)
     Route: 030
     Dates: start: 20110705
  5. LIPITOR [Concomitant]
     Active Substance: ATORVASTATIN CALCIUM
     Indication: PRODUCT USED FOR UNKNOWN INDICATION
     Route: 065
  6. SERROLACT F [Concomitant]
     Indication: PRODUCT USED FOR UNKNOWN INDICATION
     Route: 065

REACTIONS (31)
  - Facial pain [Unknown]
  - Muscular weakness [Unknown]
  - Blood pressure systolic increased [Unknown]
  - Rales [Unknown]
  - Discomfort [Unknown]
  - Lethargy [Unknown]
  - Pain in extremity [Recovering/Resolving]
  - Dyskinesia [Recovering/Resolving]
  - Nausea [Recovered/Resolved]
  - Liver abscess [Unknown]
  - Blood pressure diastolic decreased [Unknown]
  - Paraesthesia [Unknown]
  - Dyspnoea [Unknown]
  - Fatigue [Not Recovered/Not Resolved]
  - Tremor [Recovered/Resolved]
  - Haemoglobin decreased [Unknown]
  - Respiratory rate increased [Unknown]
  - Blood glucose increased [Unknown]
  - Diarrhoea [Unknown]
  - Vomiting [Recovered/Resolved]
  - Rectal haemorrhage [Recovered/Resolved]
  - Nocturia [Unknown]
  - Blood creatinine increased [Unknown]
  - Malaise [Unknown]
  - Urinary tract infection [Unknown]
  - Injection site haemorrhage [Recovered/Resolved]
  - Wheezing [Unknown]
  - Oedema peripheral [Unknown]
  - Injection site pain [Unknown]
  - Body temperature decreased [Unknown]
  - Blood pressure increased [Unknown]

NARRATIVE: CASE EVENT DATE: 20110709
